FAERS Safety Report 10576040 (Version 1)
Quarter: 2014Q4

REPORT INFORMATION
  Report Type: Spontaneous
  Country: CN (occurrence: CN)
  Receive Date: 20141111
  Receipt Date: 20141111
  Transmission Date: 20150529
  Serious: Yes (Hospitalization)
  Sender: FDA-Public Use
  Company Number: CN-CIPLA LTD.-2014CN01678

PATIENT

DRUGS (3)
  1. NSAID [Suspect]
     Active Substance: UNSPECIFIED INGREDIENT
     Indication: HERPES ZOSTER
  2. ANGIOTENSIN II RECEPTOR ANTAGONIST [Suspect]
     Active Substance: UNSPECIFIED INGREDIENT
     Indication: CARDIOMYOPATHY
  3. VALACYCLOVIR HYDROCHLORIDE. [Suspect]
     Active Substance: VALACYCLOVIR HYDROCHLORIDE
     Indication: HERPES ZOSTER
     Dosage: 1 G, TID

REACTIONS (3)
  - Anaemia [None]
  - Acute kidney injury [Recovering/Resolving]
  - Drug interaction [Recovering/Resolving]
